FAERS Safety Report 13515049 (Version 1)
Quarter: 2017Q2

REPORT INFORMATION
  Report Type: Spontaneous
  Country: US (occurrence: US)
  Receive Date: 20170504
  Receipt Date: 20170504
  Transmission Date: 20170830
  Serious: No
  Sender: FDA-Public Use
  Company Number: US-TEVA-723455ACC

PATIENT
  Sex: Female
  Weight: 54.48 kg

DRUGS (1)
  1. POTASSIUM CHLORIDE EXTENDED-RELEASE TABLETS, USP [Suspect]
     Active Substance: POTASSIUM CHLORIDE
     Indication: BLOOD POTASSIUM DECREASED
     Dates: start: 201609

REACTIONS (1)
  - Paraesthesia [Unknown]
